FAERS Safety Report 19917173 (Version 1)
Quarter: 2021Q4

REPORT INFORMATION
  Report Type: Spontaneous
  Country: US (occurrence: US)
  Receive Date: 20211005
  Receipt Date: 20211005
  Transmission Date: 20220303
  Serious: No
  Sender: FDA-Public Use
  Company Number: US-ELI_LILLY_AND_COMPANY-US202110001382

PATIENT
  Age: 73 Year
  Sex: Female

DRUGS (3)
  1. EMGALITY [Interacting]
     Active Substance: GALCANEZUMAB-GNLM
     Indication: Product used for unknown indication
     Dosage: 120 MG, UNKNOWN
     Route: 065
     Dates: start: 2019
  2. TYLENOL [Interacting]
     Active Substance: ACETAMINOPHEN
     Indication: Headache
     Dosage: UNK UNK, UNKNOWN
     Route: 065
  3. COVID-19 VACCINE [Concomitant]
     Indication: Product used for unknown indication

REACTIONS (2)
  - Hot flush [Unknown]
  - Drug interaction [Unknown]

NARRATIVE: CASE EVENT DATE: 20210401
